FAERS Safety Report 6479489-2 (Version None)
Quarter: 2009Q4

REPORT INFORMATION
  Report Type: 
  Country: None (occurrence: None)
  Receive Date: 20091207
  Receipt Date: 20091207
  Transmission Date: 20100525
  Serious: Yes (Other)
  Sender: FDA-Public Use
  Company Number: None

PATIENT
  Sex: Female
  Weight: 53.1 kg

DRUGS (3)
  1. MERCAPTOPURINE [Suspect]
     Indication: CROHN'S DISEASE
     Dosage: 50-75MG QD
  2. REMICADE [Suspect]
     Dosage: 5 MG/KG Q 8WKS IV
     Route: 042
  3. METHOTREXATE [Suspect]
     Dosage: 15 MG PO Q WEEK
     Route: 048

REACTIONS (1)
  - B-CELL LYMPHOMA [None]
